FAERS Safety Report 5375924-1 (Version None)
Quarter: 2007Q2

REPORT INFORMATION
  Report Type: 
  Country: None (occurrence: None)
  Receive Date: 20070627
  Receipt Date: 20070627
  Transmission Date: 20071010
  Serious: Yes (Hospitalization)
  Sender: FDA-Public Use
  Company Number: None

PATIENT
  Age: 67 Year
  Sex: Female
  Weight: 112.7 kg

DRUGS (15)
  1. VANCOMYCIN HCL [Suspect]
     Indication: BACTERAEMIA
     Dosage: 750 MG UNKNOWN IV
     Route: 042
  2. VANCOMYCIN HCL [Suspect]
     Indication: STAPHYLOCOCCAL INFECTION
     Dosage: 750 MG UNKNOWN IV
     Route: 042
  3. CLARITIN-D [Concomitant]
  4. ASPIRIN [Concomitant]
  5. CALCIUM SUPPLEMENT [Concomitant]
  6. AMBIEN [Concomitant]
  7. LANTUS [Concomitant]
  8. HUMALOG [Concomitant]
  9. LOPRESSOR [Concomitant]
  10. LISINOPRIL [Concomitant]
  11. SENNA [Concomitant]
  12. PROTONIX [Concomitant]
  13. BENADRYL [Concomitant]
  14. TAGAMET [Concomitant]
  15. MULTI-VITAMIN [Concomitant]

REACTIONS (3)
  - EOSINOPHILIA [None]
  - RASH [None]
  - VASCULITIS [None]
